FAERS Safety Report 26202745 (Version 1)
Quarter: 2025Q4

REPORT INFORMATION
  Report Type: Spontaneous
  Country: US (occurrence: US)
  Receive Date: 20251226
  Receipt Date: 20251226
  Transmission Date: 20260117
  Serious: No
  Sender: SANDOZ
  Company Number: US-SANDOZ-SDZ2025US083385

PATIENT
  Sex: Female

DRUGS (1)
  1. IRON SUCROSE [Suspect]
     Active Substance: IRON SUCROSE
     Indication: Product used for unknown indication
     Dosage: STRENGTH: 100MGFREQUENCY: UNKNOWN (IRON SUCROSE 100MG/5ML 10LIVI US)

REACTIONS (5)
  - Skin burning sensation [Unknown]
  - Myalgia [Unknown]
  - Arthralgia [Unknown]
  - Fishbane reaction [Unknown]
  - Exposure during pregnancy [Unknown]

NARRATIVE: CASE EVENT DATE: 20251031
